FAERS Safety Report 18220359 (Version 1)
Quarter: 2020Q3

REPORT INFORMATION
  Report Type: Spontaneous
  Country: US (occurrence: US)
  Receive Date: 20200902
  Receipt Date: 20200902
  Transmission Date: 20201103
  Serious: No
  Sender: FDA-Public Use
  Company Number: US-SA-2020SA234875

PATIENT

DRUGS (1)
  1. AUBAGIO [Suspect]
     Active Substance: TERIFLUNOMIDE
     Dosage: 7 MG
     Route: 048
     Dates: start: 2016

REACTIONS (1)
  - Nausea [Unknown]

NARRATIVE: CASE EVENT DATE: 202002
